FAERS Safety Report 5283559-4 (Version None)
Quarter: 2007Q1

REPORT INFORMATION
  Report Type: 
  Country: None (occurrence: None)
  Receive Date: 20070329
  Receipt Date: 20070329
  Transmission Date: 20070707
  Serious: Yes (Hospitalization)
  Sender: FDA-Public Use
  Company Number: None

PATIENT
  Age: 64 Year
  Sex: Male
  Weight: 103 kg

DRUGS (2)
  1. WARFARIN SODIUM [Suspect]
     Indication: ANTICOAGULANT THERAPY
     Dosage: 2.5 MG DAILY EXCEPT  PO
     Route: 048
     Dates: start: 20061109, end: 20070323
  2. WARFARIN SODIUM [Suspect]
     Indication: ATRIAL FIBRILLATION
     Dosage: 2.5 MG DAILY EXCEPT  PO
     Route: 048
     Dates: start: 20061109, end: 20070323

REACTIONS (1)
  - INTERNATIONAL NORMALISED RATIO INCREASED [None]
